FAERS Safety Report 5719422-1 (Version None)
Quarter: 2008Q2

REPORT INFORMATION
  Report Type: 
  Country: None (occurrence: None)
  Receive Date: 20080428
  Receipt Date: 20080418
  Transmission Date: 20081010
  Serious: Yes (Hospitalization, Other)
  Sender: FDA-Public Use
  Company Number: PHHY2008AU05870

PATIENT
  Age: 40 Year
  Sex: Female

DRUGS (3)
  1. CLOZAPINE [Suspect]
     Indication: SCHIZOPHRENIA
     Dosage: 400 MG AT NIGHT
     Route: 048
     Dates: start: 20051027, end: 20080402
  2. PROLADONE [Concomitant]
     Dosage: 30 MG, TID
     Dates: start: 20030101
  3. ENDONE [Concomitant]
     Dosage: 5 MG, TID
     Dates: start: 20030101

REACTIONS (3)
  - SEDATION [None]
  - TYPE 2 DIABETES MELLITUS [None]
  - WEIGHT INCREASED [None]
